FAERS Safety Report 7788413-1 (Version None)
Quarter: 2011Q3

REPORT INFORMATION
  Report Type: 
  Country: None (occurrence: None)
  Receive Date: 20110919
  Receipt Date: 20110909
  Transmission Date: 20111222
  Serious: No
  Sender: FDA-Public Use
  Company Number: 2011SP003020

PATIENT
  Age: 34 Year
  Sex: Female

DRUGS (1)
  1. LATUDA [Suspect]
     Dosage: 40 MG; ORAL
     Route: 048
     Dates: start: 20110101, end: 20110101

REACTIONS (2)
  - SWOLLEN TONGUE [None]
  - RASH [None]
